FAERS Safety Report 10198249 (Version 2)
Quarter: 2014Q2

REPORT INFORMATION
  Report Type: Spontaneous
  Country: US (occurrence: US)
  Receive Date: 20140527
  Receipt Date: 20140604
  Transmission Date: 20141212
  Serious: Yes (Hospitalization)
  Sender: FDA-Public Use
  Company Number: US-TEVA-483427USA

PATIENT
  Sex: Female

DRUGS (2)
  1. PROAIR HFA [Suspect]
     Indication: ASTHMA
     Route: 055
  2. VENTOLIN [Suspect]

REACTIONS (8)
  - Inflammation [Unknown]
  - Asthma [Unknown]
  - Drug effect decreased [Unknown]
  - Product quality issue [Unknown]
  - Product taste abnormal [Unknown]
  - Dyspnoea [Unknown]
  - Dyspnoea exertional [Unknown]
  - Intentional product misuse [Unknown]
